FAERS Safety Report 6121231-9 (Version None)
Quarter: 2009Q1

REPORT INFORMATION
  Report Type: 
  Country: None (occurrence: None)
  Receive Date: 20090312
  Receipt Date: 20090312
  Transmission Date: 20090719
  Serious: Yes (Hospitalization)
  Sender: FDA-Public Use
  Company Number: None

PATIENT
  Age: 20 Year
  Sex: Female
  Weight: 79 kg

DRUGS (2)
  1. DEPAKOTE [Suspect]
     Indication: BIPOLAR DISORDER
     Dosage: 1500 MG ONCE DAILY PO
     Route: 048
     Dates: start: 20090225, end: 20090310
  2. CLONAZEPAM [Concomitant]

REACTIONS (8)
  - ABDOMINAL PAIN [None]
  - AMMONIA INCREASED [None]
  - DEHYDRATION [None]
  - GAIT DISTURBANCE [None]
  - MENTAL STATUS CHANGES [None]
  - NAUSEA [None]
  - TOXIC ENCEPHALOPATHY [None]
  - VOMITING [None]
